FAERS Safety Report 6234931-7 (Version None)
Quarter: 2009Q2

REPORT INFORMATION
  Report Type: 
  Country: None (occurrence: None)
  Receive Date: 20090618
  Receipt Date: 20090612
  Transmission Date: 20091009
  Serious: Yes (Hospitalization)
  Sender: FDA-Public Use
  Company Number: A0792070A

PATIENT
  Age: 62 Year
  Sex: Female
  Weight: 109 kg

DRUGS (7)
  1. IMITREX [Suspect]
     Indication: MIGRAINE
     Route: 065
  2. REBIF [Suspect]
     Indication: MULTIPLE SCLEROSIS
     Dosage: 44MCG THREE TIMES PER WEEK
     Route: 058
     Dates: start: 20071010
  3. CYMBALTA [Suspect]
     Indication: DEPRESSION
     Route: 065
     Dates: start: 20070101
  4. ASPIRIN [Suspect]
     Indication: HEADACHE
     Dosage: 500MG SEE DOSAGE TEXT
     Route: 065
     Dates: start: 20081101
  5. LANTUS [Concomitant]
     Dosage: 50UNIT PER DAY
  6. HUMALOG [Concomitant]
  7. QUININE [Concomitant]

REACTIONS (3)
  - ANAEMIA [None]
  - EAR DISCOMFORT [None]
  - NASAL DISCOMFORT [None]
